FAERS Safety Report 4444993-5 (Version None)
Quarter: 2004Q3

REPORT INFORMATION
  Report Type: 
  Country: None (occurrence: None)
  Receive Date: 20040908
  Receipt Date: 20040908
  Transmission Date: 20050211
  Serious: Yes (Hospitalization)
  Sender: FDA-Public Use
  Company Number: None

PATIENT
  Age: 79 Year
  Sex: Male

DRUGS (8)
  1. FUROSEMIDE [Suspect]
     Indication: HYPERTENSION
     Dosage: 40 MG QD
     Dates: start: 20010401
  2. OMEPRAZOLE [Concomitant]
  3. DILTIAZEM [Concomitant]
  4. GUAIFENESIN [Concomitant]
  5. NORTRIPTYLINE HCL [Concomitant]
  6. FINASTERIDE [Concomitant]
  7. VIAGRA [Concomitant]
  8. TERAZOSIN HCL [Concomitant]

REACTIONS (1)
  - ORTHOSTATIC HYPOTENSION [None]
